FAERS Safety Report 22345656 (Version 1)
Quarter: 2023Q2

REPORT INFORMATION
  Report Type: Report from Study
  Country: US (occurrence: US)
  Receive Date: 20230519
  Receipt Date: 20230519
  Transmission Date: 20230721
  Serious: Yes (Life-Threatening, Hospitalization)
  Sender: FDA-Public Use
  Company Number: US-ARGENX-2022-ARGX-US002046

PATIENT

DRUGS (3)
  1. VYVGART [Suspect]
     Active Substance: EFGARTIGIMOD ALFA-FCAB
     Indication: Myasthenia gravis
     Dosage: 10 MG/KG, 1/WEEK
     Route: 042
     Dates: start: 20220203
  2. VYVGART [Suspect]
     Active Substance: EFGARTIGIMOD ALFA-FCAB
     Dosage: 10 MG/KG, 1/WEEK
     Route: 042
     Dates: start: 20230516
  3. Immunoglobulin [Concomitant]
     Indication: Antibody test abnormal
     Dosage: 80 MG, MONTHLY
     Route: 042

REACTIONS (2)
  - Myasthenia gravis crisis [Unknown]
  - Symptom recurrence [Unknown]

NARRATIVE: CASE EVENT DATE: 20230301
